FAERS Safety Report 6585573-5 (Version None)
Quarter: 2010Q1

REPORT INFORMATION
  Report Type: 
  Country: None (occurrence: None)
  Receive Date: 20100217
  Receipt Date: 20100208
  Transmission Date: 20100710
  Serious: Yes (Hospitalization)
  Sender: FDA-Public Use
  Company Number: CHNY2008GB01882

PATIENT
  Age: 39 Year
  Sex: Female
  Weight: 52 kg

DRUGS (12)
  1. LACTULOSE [Suspect]
  2. OLANZAPINE [Suspect]
     Dosage: 20 MG
  3. CLONAZEPAM (NGX) [Suspect]
     Dosage: 0.5 MG, QD
  4. FOLIC ACID (NGX) [Suspect]
     Dosage: 500 MCG DAILY
  5. METOCLOPRAMIDE HYDROCHLORIDE [Concomitant]
     Dosage: 10 MG, UNK
  6. LITHIUM [Suspect]
     Indication: BIPOLAR DISORDER
     Dosage: 1.7 G PER DAY
  7. RANITIDINE [Suspect]
     Dosage: 50 MG, UNK
     Route: 042
  8. SODIUM CITRATE [Suspect]
     Route: 048
  9. THIOPENTAL SODIUM [Suspect]
     Dosage: 250 MG, UNK
  10. SUCCINYLCHOLINE CHLORIDE [Suspect]
     Dosage: 100 MG, UNK
  11. ISOFLURANE [Suspect]
  12. HARTMANN'S SOLUTION [Suspect]
     Dosage: 1 L, UNK

REACTIONS (15)
  - AGITATION [None]
  - AKATHISIA [None]
  - ANAESTHETIC COMPLICATION [None]
  - CAESAREAN SECTION [None]
  - COMA SCALE ABNORMAL [None]
  - CONFUSIONAL STATE [None]
  - COUGH [None]
  - DISORIENTATION [None]
  - DRUG EXPOSURE DURING PREGNANCY [None]
  - HYDRONEPHROSIS [None]
  - PREMATURE LABOUR [None]
  - RENAL IMPAIRMENT [None]
  - RESTLESSNESS [None]
  - THERAPEUTIC AGENT TOXICITY [None]
  - URINOMA [None]
